FAERS Safety Report 17666853 (Version 1)
Quarter: 2020Q2

REPORT INFORMATION
  Report Type: Spontaneous
  Country: US (occurrence: US)
  Receive Date: 20200414
  Receipt Date: 20200414
  Transmission Date: 20200713
  Serious: No
  Sender: FDA-Public Use
  Company Number: US-JAZZ-2020-US-001037

PATIENT
  Sex: Female

DRUGS (6)
  1. SUNOSI [Suspect]
     Active Substance: SOLRIAMFETOL
     Dosage: 150 MG, QD
     Route: 048
     Dates: start: 20200116, end: 20200221
  2. ADDERALL [Concomitant]
     Active Substance: AMPHETAMINE ASPARTATE\AMPHETAMINE SULFATE\DEXTROAMPHETAMINE SACCHARATE\DEXTROAMPHETAMINE SULFATE
     Indication: NARCOLEPSY
     Dosage: 20 MG (TITER), BID
     Route: 048
     Dates: start: 20181221
  3. SUNOSI [Suspect]
     Active Substance: SOLRIAMFETOL
     Indication: NARCOLEPSY
     Dosage: 75 MG, QD
  4. WELLBUTRIN [Concomitant]
     Active Substance: BUPROPION HYDROCHLORIDE
     Indication: NARCOLEPSY
     Dosage: 450 MG (TITER), QD
     Route: 048
  5. BUSPAR [Concomitant]
     Active Substance: BUSPIRONE HYDROCHLORIDE
     Indication: BIPOLAR DISORDER
     Dosage: 15 MG (TITER), TID
     Route: 048
  6. LAMICTAL [Concomitant]
     Active Substance: LAMOTRIGINE
     Indication: BIPOLAR DISORDER
     Dosage: 100 MG (TITER), AT BEDTIME
     Route: 048

REACTIONS (3)
  - Feeling jittery [Recovered/Resolved]
  - Abdominal discomfort [Recovered/Resolved]
  - Visual impairment [Recovered/Resolved]
